FAERS Safety Report 23414717 (Version 1)
Quarter: 2024Q1

REPORT INFORMATION
  Report Type: Spontaneous
  Country: FR (occurrence: FR)
  Receive Date: 20240118
  Receipt Date: 20240118
  Transmission Date: 20240410
  Serious: Yes (Hospitalization)
  Sender: FDA-Public Use
  Company Number: None

PATIENT
  Age: 73 Year
  Sex: Male
  Weight: 73 kg

DRUGS (1)
  1. OXALIPLATIN [Suspect]
     Active Substance: OXALIPLATIN
     Indication: Oesophageal carcinoma
     Dosage: 5 MG/ML, CONCENTRATE FOR SOLUTION FOR INFUSION; 105 MG
     Dates: start: 20231030, end: 20231030

REACTIONS (1)
  - Intravascular haemolysis [Recovering/Resolving]

NARRATIVE: CASE EVENT DATE: 20231030
